FAERS Safety Report 7751340-X (Version None)
Quarter: 2011Q3

REPORT INFORMATION
  Report Type: 
  Country: None (occurrence: None)
  Receive Date: 20110914
  Receipt Date: 20100726
  Transmission Date: 20111222
  Serious: Yes (Hospitalization, Other)
  Sender: FDA-Public Use
  Company Number: PHHY2010TW48251

PATIENT
  Sex: Female

DRUGS (2)
  1. GLEEVEC [Suspect]
     Indication: GASTROINTESTINAL STROMAL TUMOUR
     Dosage: 600 MG, UNK
     Route: 048
     Dates: start: 20080310
  2. ANTIINFLAMMATORY/ANTIRHEUMATIC PRODUCTS [Concomitant]

REACTIONS (11)
  - TOOTHACHE [None]
  - DIZZINESS [None]
  - GINGIVAL SWELLING [None]
  - OCCULT BLOOD [None]
  - DIARRHOEA [None]
  - FAECES DISCOLOURED [None]
  - BACK PAIN [None]
  - ANAL HAEMORRHAGE [None]
  - PERIODONTITIS [None]
  - FATIGUE [None]
  - ANAEMIA [None]
